FAERS Safety Report 8839703 (Version 1)
Quarter: 2012Q4

REPORT INFORMATION
  Report Type: Spontaneous
  Country: IN (occurrence: None)
  Receive Date: 20121011
  Receipt Date: 20121011
  Transmission Date: 20130627
  Serious: Yes (Hospitalization)
  Sender: FDA-Public Use
  Company Number: 2012-01462

PATIENT
  Age: 28 Year
  Sex: Female

DRUGS (2)
  1. CEFUROXIME (UNKNOWN) [Suspect]
     Indication: UPPER RESPIRATORY TRACT INFECTION
  2. CETRIZINE [Concomitant]

REACTIONS (2)
  - Panic attack [None]
  - Sinus tachycardia [None]
